FAERS Safety Report 16074960 (Version 2)
Quarter: 2019Q2

REPORT INFORMATION
  Report Type: Report from Study
  Country: NZ (occurrence: NZ)
  Receive Date: 20190315
  Receipt Date: 20190402
  Transmission Date: 20190711
  Serious: Yes (Other)
  Sender: FDA-Public Use
  Company Number: NZ-BIOGEN-2016BI00332634

PATIENT
  Age: 58 Year
  Sex: Male

DRUGS (3)
  1. TYSABRI [Suspect]
     Active Substance: NATALIZUMAB
     Indication: RELAPSING-REMITTING MULTIPLE SCLEROSIS
     Dosage: INFUSED OVER 1 HOUR
     Route: 050
     Dates: start: 20161204
  2. TYSABRI [Suspect]
     Active Substance: NATALIZUMAB
     Dosage: INFUSED OVER 1 HOUR
     Route: 050
     Dates: start: 20161207
  3. TYSABRI [Suspect]
     Active Substance: NATALIZUMAB
     Dosage: INFUSED OVER 1 HOUR
     Route: 050
     Dates: start: 201807

REACTIONS (32)
  - Vitamin B12 decreased [Unknown]
  - Vitamin D decreased [Unknown]
  - Memory impairment [Unknown]
  - Rhinitis allergic [Unknown]
  - Hypoaesthesia [Unknown]
  - Depressed mood [Recovered/Resolved]
  - Pollakiuria [Not Recovered/Not Resolved]
  - Multiple sclerosis relapse [Recovered/Resolved]
  - Cataract [Unknown]
  - Ligament injury [Unknown]
  - Cognitive disorder [Unknown]
  - Anxiety [Recovered/Resolved]
  - Feeling abnormal [Unknown]
  - Sensory disturbance [Not Recovered/Not Resolved]
  - Sinus headache [Not Recovered/Not Resolved]
  - Dysphonia [Unknown]
  - Cerebral disorder [Unknown]
  - Gastrointestinal disorder [Not Recovered/Not Resolved]
  - Sleep disorder [Not Recovered/Not Resolved]
  - Restless legs syndrome [Not Recovered/Not Resolved]
  - Fatigue [Unknown]
  - Oropharyngeal pain [Unknown]
  - Prescribed underdose [Not Recovered/Not Resolved]
  - Limb discomfort [Unknown]
  - Temperature regulation disorder [Recovered/Resolved]
  - Motor dysfunction [Not Recovered/Not Resolved]
  - Sinusitis [Not Recovered/Not Resolved]
  - Photophobia [Unknown]
  - Neuralgia [Unknown]
  - Central nervous system lesion [Not Recovered/Not Resolved]
  - Iodine deficiency [Unknown]
  - Stress [Unknown]

NARRATIVE: CASE EVENT DATE: 20161204
